FAERS Safety Report 7435112-1 (Version None)
Quarter: 2011Q2

REPORT INFORMATION
  Report Type: 
  Country: None (occurrence: None)
  Receive Date: 20110425
  Receipt Date: 20110412
  Transmission Date: 20111010
  Serious: Yes (Hospitalization, Other)
  Sender: FDA-Public Use
  Company Number: PHHY2010GB09656

PATIENT
  Sex: Male

DRUGS (3)
  1. CLOZARIL [Suspect]
     Route: 048
     Dates: start: 20010701
  2. CLOZARIL [Suspect]
     Indication: SCHIZOPHRENIA
     Dosage: 500 MG DAILY
     Route: 048
     Dates: start: 19940104
  3. CLOZARIL [Suspect]
     Dosage: 450 MG DAILY
     Route: 048

REACTIONS (7)
  - MENTAL IMPAIRMENT [None]
  - HYPERHIDROSIS [None]
  - DRUG DOSE OMISSION [None]
  - COMMUNICATION DISORDER [None]
  - AGITATION [None]
  - DEPRESSED LEVEL OF CONSCIOUSNESS [None]
  - CONFUSIONAL STATE [None]
